FAERS Safety Report 12123476 (Version 1)
Quarter: 2016Q1

REPORT INFORMATION
  Report Type: Spontaneous
  Country: US (occurrence: None)
  Receive Date: 20160226
  Receipt Date: 20160226
  Transmission Date: 20160526
  Serious: Yes (Disabling)
  Sender: FDA-Public Use
  Company Number: None

PATIENT
  Age: 53 Year
  Sex: Female
  Weight: 49.9 kg

DRUGS (5)
  1. GLUTHTHIONE [Concomitant]
  2. CIPROFLOXIN [Suspect]
     Active Substance: CIPROFLOXACIN
     Indication: URINARY TRACT INFECTION
     Dosage: 500 MG 2 PILLS TWICE DAILY BY MOUTH
     Route: 048
     Dates: start: 20151004, end: 20151005
  3. SYNTHROID [Concomitant]
     Active Substance: LEVOTHYROXINE SODIUM
  4. PROBIOTIC [Concomitant]
     Active Substance: PROBIOTICS NOS
  5. CIPROFLOXIN [Suspect]
     Active Substance: CIPROFLOXACIN
     Indication: CYSTITIS
     Dosage: 500 MG 2 PILLS TWICE DAILY BY MOUTH
     Route: 048
     Dates: start: 20151004, end: 20151005

REACTIONS (21)
  - Cardiac flutter [None]
  - Vertigo [None]
  - Vitreous floaters [None]
  - Depression [None]
  - Muscle twitching [None]
  - Muscle spasms [None]
  - Blood pressure increased [None]
  - Insomnia [None]
  - Dyspnoea [None]
  - Suicidal ideation [None]
  - Asthenia [None]
  - Tinnitus [None]
  - Tremor [None]
  - Gastrointestinal disorder [None]
  - Fatigue [None]
  - Weight decreased [None]
  - Anxiety [None]
  - Palpitations [None]
  - Muscle swelling [None]
  - Hypoaesthesia [None]
  - Eye disorder [None]

NARRATIVE: CASE EVENT DATE: 20151004
